FAERS Safety Report 8207604-9 (Version None)
Quarter: 2012Q1

REPORT INFORMATION
  Report Type: 
  Country: None (occurrence: None)
  Receive Date: 20120314
  Receipt Date: 20120314
  Transmission Date: 20120608
  Serious: Yes (Other)
  Sender: FDA-Public Use
  Company Number: None

PATIENT
  Age: 28 Year
  Sex: Female
  Weight: 45.812 kg

DRUGS (2)
  1. LOESTRIN 1.5/30 [Suspect]
     Indication: PROPHYLAXIS
     Dosage: ONE PILL
     Route: 048
     Dates: start: 20120307, end: 20120313
  2. LOESTRIN 1.5/30 [Suspect]
     Indication: OVARIAN CYST
     Dosage: ONE PILL
     Route: 048
     Dates: start: 20120307, end: 20120313

REACTIONS (3)
  - PAIN [None]
  - VAGINAL HAEMORRHAGE [None]
  - NO THERAPEUTIC RESPONSE [None]
